FAERS Safety Report 7266142-0 (Version None)
Quarter: 2011Q1

REPORT INFORMATION
  Report Type: 
  Country: None (occurrence: None)
  Receive Date: 20110131
  Receipt Date: 20110120
  Transmission Date: 20110831
  Serious: Yes (Disabling)
  Sender: FDA-Public Use
  Company Number: US-ASTRAZENECA-2011SE03404

PATIENT
  Age: 80 Year
  Sex: Female

DRUGS (2)
  1. SYMBICORT [Suspect]
     Indication: CHRONIC OBSTRUCTIVE PULMONARY DISEASE
     Dosage: 80-4.5MCG BID
     Route: 055
     Dates: start: 20090101
  2. SYMBICORT [Suspect]
     Indication: ASTHMA
     Dosage: 80-4.5MCG BID
     Route: 055
     Dates: start: 20090101

REACTIONS (5)
  - DRUG DOSE OMISSION [None]
  - BLINDNESS UNILATERAL [None]
  - DYSPNOEA [None]
  - APHONIA [None]
  - PULMONARY CONGESTION [None]
